FAERS Safety Report 5824239-3 (Version None)
Quarter: 2008Q3

REPORT INFORMATION
  Report Type: 
  Country: None (occurrence: None)
  Receive Date: 20080718
  Receipt Date: 20080626
  Transmission Date: 20090109
  Serious: Yes (Hospitalization, Other)
  Sender: FDA-Public Use
  Company Number: A-NJ2008-20396

PATIENT
  Age: 68 Year
  Sex: Female
  Weight: 73.5 kg

DRUGS (13)
  1. TRACLEER [Suspect]
     Indication: PULMONARY HYPERTENSION
     Dosage: 62.5 MG, BID, ORAL; 125 MG, BID, ORAL
     Route: 048
     Dates: start: 20080225, end: 20080316
  2. TRACLEER [Suspect]
     Indication: PULMONARY HYPERTENSION
     Dosage: 62.5 MG, BID, ORAL; 125 MG, BID, ORAL
     Route: 048
     Dates: start: 20080317, end: 20080408
  3. AMITRIPTYLINE HCL [Concomitant]
  4. METOPROLOL TARTRATE [Concomitant]
  5. CADUET (AMLODIPINE BESILATE, ATORVASTATIN CALCIUM) [Concomitant]
  6. POTASSIUM (POTASSIUM) [Concomitant]
  7. NEXIUM [Concomitant]
  8. HYDRALAZINE HCL [Concomitant]
  9. TUMS (CALCIUM CARBONATE) [Concomitant]
  10. IRON (IRON) [Concomitant]
  11. BUMEX [Concomitant]
  12. OXYGEN (OXYGEN) [Concomitant]
  13. VITAMIN D [Concomitant]

REACTIONS (2)
  - PRURITUS [None]
  - RASH [None]
